FAERS Safety Report 12877673 (Version 5)
Quarter: 2017Q2

REPORT INFORMATION
  Report Type: Spontaneous
  Country: US (occurrence: US)
  Receive Date: 20161024
  Receipt Date: 20170404
  Transmission Date: 20170830
  Serious: No
  Sender: FDA-Public Use
  Company Number: US-PFIZER INC-2016488580

PATIENT
  Age: 65 Year
  Sex: Female
  Weight: 72.56 kg

DRUGS (1)
  1. XELJANZ XR [Suspect]
     Active Substance: TOFACITINIB CITRATE
     Indication: RHEUMATOID ARTHRITIS
     Dosage: 11 MG, 1X/DAY
     Route: 048
     Dates: start: 20160922

REACTIONS (5)
  - Malaise [Unknown]
  - Drug ineffective [Unknown]
  - Influenza [Unknown]
  - Musculoskeletal stiffness [Unknown]
  - Dehydration [Unknown]
